FAERS Safety Report 4589492-5 (Version None)
Quarter: 2005Q1

REPORT INFORMATION
  Report Type: 
  Country: None (occurrence: None)
  Receive Date: 20050216
  Receipt Date: 20050127
  Transmission Date: 20050727
  Serious: Yes (Other)
  Sender: FDA-Public Use
  Company Number: GBWYE256003DEC04

PATIENT
  Age: 33 Year
  Sex: Male

DRUGS (2)
  1. EFFEXOR [Suspect]
     Indication: MAJOR DEPRESSION
     Dosage: 75 + 150 MG FREQUENCY UNSPECIFIED ORAL - SEE IMAGE
     Route: 048
     Dates: start: 20030601, end: 20030101
  2. EFFEXOR [Suspect]
     Indication: MAJOR DEPRESSION
     Dosage: 75 + 150 MG FREQUENCY UNSPECIFIED ORAL - SEE IMAGE
     Route: 048
     Dates: start: 20030701

REACTIONS (9)
  - DISTURBANCE IN ATTENTION [None]
  - FEELING ABNORMAL [None]
  - HALLUCINATION, TACTILE [None]
  - HYPERACUSIS [None]
  - INSOMNIA [None]
  - STEREOTYPIC MOVEMENT DISORDER [None]
  - SUICIDAL IDEATION [None]
  - TEARFULNESS [None]
  - THINKING ABNORMAL [None]
